FAERS Safety Report 18414093 (Version 1)
Quarter: 2020Q4

REPORT INFORMATION
  Report Type: Spontaneous
  Country: US (occurrence: US)
  Receive Date: 20201022
  Receipt Date: 20201022
  Transmission Date: 20210114
  Serious: Yes (Hospitalization, Other)
  Sender: FDA-Public Use
  Company Number: US-ELI_LILLY_AND_COMPANY-US202010006459

PATIENT
  Sex: Female

DRUGS (4)
  1. LEVEMIR [Concomitant]
     Active Substance: INSULIN DETEMIR
     Indication: PRODUCT USED FOR UNKNOWN INDICATION
  2. TRESIBA [Concomitant]
     Active Substance: INSULIN DEGLUDEC
     Indication: PRODUCT USED FOR UNKNOWN INDICATION
  3. LANTUS [Concomitant]
     Active Substance: INSULIN GLARGINE
     Indication: PRODUCT USED FOR UNKNOWN INDICATION
  4. HUMALOG [Suspect]
     Active Substance: INSULIN LISPRO
     Indication: TYPE 1 DIABETES MELLITUS
     Dosage: UNK UNK, UNKNOWN
     Route: 065

REACTIONS (13)
  - Staphylococcal infection [Unknown]
  - Accident [Unknown]
  - Gait inability [Unknown]
  - Joint dislocation [Unknown]
  - Asthenia [Unknown]
  - Epigastric discomfort [Unknown]
  - Depression [Unknown]
  - Back injury [Unknown]
  - Pain [Unknown]
  - Ketoacidosis [Unknown]
  - Perforated ulcer [Unknown]
  - Haematemesis [Unknown]
  - Fall [Unknown]

NARRATIVE: CASE EVENT DATE: 2016
